FAERS Safety Report 12639721 (Version 1)
Quarter: 2016Q3

REPORT INFORMATION
  Report Type: Spontaneous
  Country: US (occurrence: US)
  Receive Date: 20160810
  Receipt Date: 20160810
  Transmission Date: 20161109
  Serious: No
  Sender: FDA-Public Use
  Company Number: US-ASTRAZENECA-2016SE74759

PATIENT
  Sex: Female

DRUGS (2)
  1. FASLODEX [Suspect]
     Active Substance: FULVESTRANT
     Indication: PROPHYLAXIS
     Route: 030
  2. IBRANCE [Suspect]
     Active Substance: PALBOCICLIB
     Indication: PROPHYLAXIS
     Dosage: DAILY FOR 21 DAYS
     Route: 048
     Dates: start: 20160307

REACTIONS (12)
  - Feeling hot [Unknown]
  - Platelet count increased [Unknown]
  - Dizziness [Unknown]
  - Nasal congestion [Unknown]
  - White blood cell count decreased [Unknown]
  - Full blood count abnormal [Recovering/Resolving]
  - Red blood cell count decreased [Unknown]
  - Feeling abnormal [Unknown]
  - Fatigue [Unknown]
  - Chills [Unknown]
  - Injection site pruritus [Unknown]
  - Erythema [Unknown]
